FAERS Safety Report 9007194 (Version 2)
Quarter: 2013Q1

REPORT INFORMATION
  Report Type: Spontaneous
  Country: US (occurrence: US)
  Receive Date: 20130110
  Receipt Date: 20130208
  Transmission Date: 20140127
  Serious: Yes (Death)
  Sender: FDA-Public Use
  Company Number: US-GLAXOSMITHKLINE-A1007852A

PATIENT
  Age: 76 Year
  Sex: Female
  Weight: 67.7 kg

DRUGS (16)
  1. BENLYSTA [Suspect]
     Indication: PRODUCT USED FOR UNKNOWN INDICATION
     Dosage: 720MG CYCLIC
     Route: 042
     Dates: start: 20110608, end: 201202
  2. AZATHIOPRINE [Concomitant]
  3. CALCIUM [Concomitant]
  4. CARVEDILOL [Concomitant]
  5. CITALOPRAM HYDROBROMIDE [Concomitant]
  6. COUMADIN [Concomitant]
  7. FORTEO [Concomitant]
  8. HYDROXYCHLOROQUINE SULFATE [Concomitant]
  9. LOSARTAN POTASSIUM [Concomitant]
  10. MULTIVITAMINS [Concomitant]
  11. OMEPRAZOLE [Concomitant]
  12. OXYCODONE + ACETAMINOPHEN [Concomitant]
  13. OXYGEN [Concomitant]
  14. PREDNISONE [Concomitant]
  15. SLOW IRON [Concomitant]
  16. SOLU CORTEF [Concomitant]

REACTIONS (4)
  - Lymphoma [Fatal]
  - Non-Hodgkin^s lymphoma [Unknown]
  - Anaemia [Unknown]
  - Ill-defined disorder [Unknown]
